FAERS Safety Report 8858483 (Version 1)
Quarter: 2012Q4

REPORT INFORMATION
  Report Type: 
  Country: BR (occurrence: BR)
  Receive Date: 20121024
  Receipt Date: 20121024
  Transmission Date: 20130627
  Serious: Yes (Hospitalization)
  Sender: FDA-Public Use
  Company Number: BR-ASTRAZENECA-2012SE26903

PATIENT
  Age: 56 Year
  Sex: Female

DRUGS (4)
  1. ATACAND COMB [Suspect]
     Indication: HYPERTENSION
     Dosage: 16/5 MG, ONCE DAILY
     Route: 048
     Dates: start: 201201, end: 201210
  2. BRILINTA [Suspect]
     Indication: ANGINA UNSTABLE
     Route: 048
     Dates: start: 201204
  3. METFORMIN [Concomitant]
     Indication: DIABETES MELLITUS
  4. LANTUS [Concomitant]
     Indication: DIABETES MELLITUS

REACTIONS (4)
  - Angina unstable [Recovered/Resolved]
  - Coronary artery occlusion [Not Recovered/Not Resolved]
  - Hypertensive crisis [Recovered/Resolved]
  - Drug ineffective [Recovered/Resolved]
